FAERS Safety Report 18981401 (Version 1)
Quarter: 2021Q1

REPORT INFORMATION
  Report Type: Spontaneous
  Country: US (occurrence: US)
  Receive Date: 20210308
  Receipt Date: 20210308
  Transmission Date: 20210420
  Serious: Yes (Other)
  Sender: FDA-Public Use
  Company Number: None

PATIENT
  Age: 34 Year
  Sex: Female

DRUGS (13)
  1. SALINE [Concomitant]
     Active Substance: SODIUM CHLORIDE
  2. CREON [Concomitant]
     Active Substance: PANCRELIPASE AMYLASE\PANCRELIPASE LIPASE\PANCRELIPASE PROTEASE
  3. PANTOPRAZOLE SODIUM DR 20MG [Suspect]
     Active Substance: PANTOPRAZOLE SODIUM
     Indication: GASTROOESOPHAGEAL REFLUX DISEASE
     Route: 048
     Dates: start: 20210226, end: 20210308
  4. PRENATAL MULTI?VITAMINS [Concomitant]
  5. TRIKAFTA [Concomitant]
     Active Substance: ELEXACAFTOR\IVACAFTOR\TEZACAFTOR
  6. BASALGUR [Concomitant]
  7. FISH OIL [Concomitant]
     Active Substance: FISH OIL
  8. PANTOPRAZOLE SODIUM DR 20MG [Suspect]
     Active Substance: PANTOPRAZOLE SODIUM
     Indication: DYSPEPSIA
     Route: 048
     Dates: start: 20210226, end: 20210308
  9. PULMOZYME [Concomitant]
     Active Substance: DORNASE ALFA
  10. NOVOLOG [Concomitant]
     Active Substance: INSULIN ASPART
  11. VITAMIN D [Concomitant]
     Active Substance: VITAMIN D NOS
  12. CALCIUM [Concomitant]
     Active Substance: CALCIUM
  13. BIRTH CONTROL [Concomitant]
     Active Substance: UNSPECIFIED INGREDIENT

REACTIONS (4)
  - Product substitution issue [None]
  - Dyspepsia [None]
  - Gastrooesophageal reflux disease [None]
  - Drug ineffective [None]

NARRATIVE: CASE EVENT DATE: 20210308
